FAERS Safety Report 8461794-1 (Version None)
Quarter: 2012Q2

REPORT INFORMATION
  Report Type: 
  Country: None (occurrence: None)
  Receive Date: 20120625
  Receipt Date: 20120615
  Transmission Date: 20120825
  Serious: Yes (Hospitalization, Other)
  Sender: FDA-Public Use
  Company Number: US-BAYER-2012-011356

PATIENT
  Age: 24 Year
  Sex: Female
  Weight: 78.912 kg

DRUGS (6)
  1. DIFLUCAN [Concomitant]
     Dosage: 10 MG, UNK
  2. DIFLUCAN [Concomitant]
     Dosage: 150 MG, UNK
  3. YAZ [Suspect]
     Indication: CONTRACEPTION
     Dosage: UNK
     Dates: start: 20090219, end: 20090425
  4. AMPICILLIN [Concomitant]
     Indication: BETA HAEMOLYTIC STREPTOCOCCAL INFECTION
     Dosage: 500 MG, UNK
     Route: 048
     Dates: start: 20090317, end: 20090324
  5. FLUCONAZOLE [Concomitant]
     Indication: VULVOVAGINAL MYCOTIC INFECTION
     Dosage: 150 MG, UNK
     Route: 048
     Dates: start: 20090219, end: 20090317
  6. YASMIN [Suspect]

REACTIONS (12)
  - BACK PAIN [None]
  - ANXIETY [None]
  - THROMBOSIS [None]
  - PAIN [None]
  - TACHYCARDIA [None]
  - DYSPNOEA EXERTIONAL [None]
  - CHEST PAIN [None]
  - DYSPNOEA [None]
  - INJURY [None]
  - PULMONARY EMBOLISM [None]
  - EMOTIONAL DISTRESS [None]
  - TACHYPNOEA [None]
